FAERS Safety Report 7772162-X (Version None)
Quarter: 2011Q3

REPORT INFORMATION
  Report Type: 
  Country: None (occurrence: None)
  Receive Date: 20110922
  Receipt Date: 20101101
  Transmission Date: 20111222
  Serious: No
  Sender: FDA-Public Use
  Company Number: US-ASTRAZENECA-2010SE51984

PATIENT
  Age: 604 Month
  Sex: Female

DRUGS (6)
  1. SEROQUEL [Suspect]
     Indication: HALLUCINATION, AUDITORY
     Route: 048
  2. FLUOXETINE [Concomitant]
  3. HYDROXYZHEL [Concomitant]
  4. ONAZEPAM [Concomitant]
  5. SEROQUEL [Suspect]
     Route: 048
     Dates: start: 20100101, end: 20101001
  6. BUSPIRONE HCL [Concomitant]

REACTIONS (5)
  - HALLUCINATION, AUDITORY [None]
  - INSOMNIA [None]
  - DRUG DOSE OMISSION [None]
  - AGGRESSION [None]
  - ABNORMAL DREAMS [None]
